FAERS Safety Report 4465161-7 (Version None)
Quarter: 2004Q3

REPORT INFORMATION
  Report Type: 
  Country: None (occurrence: None)
  Receive Date: 20040929
  Receipt Date: 20040915
  Transmission Date: 20050211
  Serious: Yes (Other)
  Sender: FDA-Public Use
  Company Number: USA040978370

PATIENT
  Age: 60 Year
  Sex: Male
  Weight: 86 kg

DRUGS (5)
  1. XIGRIS [Suspect]
     Indication: SEPSIS
     Dosage: 24 UG/KG/HR
     Dates: start: 20040901, end: 20040901
  2. VASOPRESSIN INJECTION [Concomitant]
  3. NEOSYNEPHRINE (PHENYLEPHRINE HYDROCHLORIDE) [Concomitant]
  4. DOPAMINE HCL [Concomitant]
  5. LEVOPHED [Concomitant]

REACTIONS (4)
  - ABDOMINAL STRANGULATED HERNIA [None]
  - ASCITES [None]
  - DISEASE RECURRENCE [None]
  - SEPSIS [None]
